FAERS Safety Report 9670232 (Version 1)
Quarter: 2013Q4

REPORT INFORMATION
  Report Type: Report from Study
  Country: BR (occurrence: BR)
  Receive Date: 20131105
  Receipt Date: 20131105
  Transmission Date: 20140711
  Serious: Yes (Hospitalization, Other)
  Sender: FDA-Public Use
  Company Number: PHHY2013BR125368

PATIENT
  Age: 52 Year
  Sex: Female
  Weight: 51 kg

DRUGS (4)
  1. ACLASTA [Suspect]
     Indication: OSTEOPOROSIS
     Dosage: 5 MG, UNK
     Route: 042
     Dates: start: 2011
  2. ACLASTA [Suspect]
     Dosage: 5 MG, UNK
     Route: 042
     Dates: start: 201207
  3. LOSARTAN [Concomitant]
     Dosage: UNK UKN, UNK
     Dates: start: 1999
  4. ATENOLOL [Concomitant]
     Dosage: UNK UKN, UNK
     Dates: start: 1999

REACTIONS (10)
  - Joint injury [Recovering/Resolving]
  - Bacterial infection [Recovering/Resolving]
  - Fall [Recovering/Resolving]
  - Shock [Recovering/Resolving]
  - Skeletal injury [Recovering/Resolving]
  - Femur fracture [Recovering/Resolving]
  - Pain of skin [Recovering/Resolving]
  - Pain [Recovering/Resolving]
  - Vomiting [Recovering/Resolving]
  - Pain in extremity [Recovering/Resolving]
